FAERS Safety Report 16539620 (Version 31)
Quarter: 2023Q1

REPORT INFORMATION
  Report Type: Spontaneous
  Country: GB (occurrence: GB)
  Receive Date: 20190708
  Receipt Date: 20230124
  Transmission Date: 20230418
  Serious: Yes (Hospitalization, Other)
  Sender: FDA-Public Use
  Company Number: GB-MYLANLABS-2016M1049014

PATIENT
  Age: 26 Year
  Sex: Female

DRUGS (45)
  1. CLOZARIL [Suspect]
     Active Substance: CLOZAPINE
     Indication: Schizophrenia
     Dosage: 100 MILLIGRAM, AM
     Route: 048
     Dates: start: 20160606
  2. CLOZARIL [Suspect]
     Active Substance: CLOZAPINE
     Indication: Depression
     Dosage: 200MG, QD,100 MG AM (300 MG, QD) 100 MG
     Route: 048
     Dates: start: 20160606
  3. CLOZARIL [Suspect]
     Active Substance: CLOZAPINE
     Dosage: UNK (28-NOV-2018),QD
     Route: 048
     Dates: start: 20181128
  4. CLOZARIL [Suspect]
     Active Substance: CLOZAPINE
     Dosage: UNK , QD
     Route: 048
  5. CLOZARIL [Suspect]
     Active Substance: CLOZAPINE
     Dosage: 300 MG, QD(100 MG AM AND 200 MG PM
     Route: 048
     Dates: start: 20160606
  6. CLOZARIL [Suspect]
     Active Substance: CLOZAPINE
     Dosage: 100 MILLIGRAM, QD
     Route: 048
     Dates: start: 20160606
  7. CLOZARIL [Suspect]
     Active Substance: CLOZAPINE
     Dosage: 500 MILLIGRAM, QD
     Route: 048
     Dates: start: 201903
  8. CLOZARIL [Suspect]
     Active Substance: CLOZAPINE
     Dosage: 550 MILLIGRAM
     Route: 048
     Dates: start: 201903
  9. CLOZARIL [Suspect]
     Active Substance: CLOZAPINE
     Dosage: UNK
     Route: 048
     Dates: start: 201903
  10. CLOZARIL [Suspect]
     Active Substance: CLOZAPINE
     Dosage: UNK, QD
     Route: 048
     Dates: start: 20181128
  11. ARIPIPRAZOLE [Suspect]
     Active Substance: ARIPIPRAZOLE
     Indication: Affective disorder
     Dosage: UNK
     Route: 048
     Dates: start: 201603
  12. ARIPIPRAZOLE [Suspect]
     Active Substance: ARIPIPRAZOLE
     Indication: Schizophrenia
     Dosage: UNK, (MAR-2019)
     Route: 048
  13. ARIPIPRAZOLE [Suspect]
     Active Substance: ARIPIPRAZOLE
     Dosage: UNK, (MAR-2019)
     Route: 065
  14. ARIPIPRAZOLE [Suspect]
     Active Substance: ARIPIPRAZOLE
     Dosage: UNK
     Route: 065
  15. ARIPIPRAZOLE [Suspect]
     Active Substance: ARIPIPRAZOLE
     Dosage: UNK
     Route: 048
     Dates: start: 201903
  16. MIRTAZAPINE [Suspect]
     Active Substance: MIRTAZAPINE
     Indication: Depression
     Dosage: 45 MILLIGRAM
     Route: 048
  17. MIRTAZAPINE [Suspect]
     Active Substance: MIRTAZAPINE
     Dosage: MAR-2019
     Route: 048
     Dates: start: 201903
  18. MIRTAZAPINE [Suspect]
     Active Substance: MIRTAZAPINE
     Dosage: MAR-2019
     Route: 048
     Dates: start: 201903
  19. MIRTAZAPINE [Suspect]
     Active Substance: MIRTAZAPINE
     Dosage: 45 MILLIGRAM
     Route: 048
     Dates: start: 201903, end: 20220208
  20. MIRTAZAPINE [Suspect]
     Active Substance: MIRTAZAPINE
     Dosage: UNK
     Route: 048
     Dates: start: 201903
  21. TOPIRAMATE [Suspect]
     Active Substance: TOPIRAMATE
     Indication: Affective disorder
     Dosage: 50 MILLIGRAM, QD (25 MG, BID)
     Route: 048
     Dates: start: 201603
  22. TOPIRAMATE [Suspect]
     Active Substance: TOPIRAMATE
     Dosage: UNK (MAR-2019)
     Route: 048
  23. TOPIRAMATE [Suspect]
     Active Substance: TOPIRAMATE
     Dosage: UNK
     Route: 048
  24. TOPIRAMATE [Suspect]
     Active Substance: TOPIRAMATE
     Dosage: 50 MILLIGRAM, QD
     Route: 048
  25. TOPIRAMATE [Suspect]
     Active Substance: TOPIRAMATE
     Dosage: 50 MILLIGRAM, QD
     Route: 065
  26. TOPIRAMATE [Suspect]
     Active Substance: TOPIRAMATE
     Dosage: UNK (MAR-2019)
     Route: 048
  27. TOPIRAMATE [Suspect]
     Active Substance: TOPIRAMATE
     Dosage: 25 MILLIGRAM, BID (25 MG, BID)
     Route: 048
     Dates: start: 201903
  28. TOPIRAMATE [Suspect]
     Active Substance: TOPIRAMATE
     Dosage: 25 MILLIGRAM, QD, 25 MG, BID
     Route: 048
     Dates: start: 201603
  29. TOPIRAMATE [Suspect]
     Active Substance: TOPIRAMATE
     Dosage: 50 MILLIGRAM, QD
     Route: 048
     Dates: start: 201903
  30. TOPIRAMATE [Suspect]
     Active Substance: TOPIRAMATE
     Dosage: 100 MG, QD
     Route: 048
     Dates: start: 201903
  31. TOPIRAMATE [Suspect]
     Active Substance: TOPIRAMATE
     Dosage: 100 MILLIGRAM, QD
     Route: 048
  32. TOPIRAMATE [Suspect]
     Active Substance: TOPIRAMATE
     Dosage: UNK, OVERDOSED
     Route: 065
     Dates: start: 201903
  33. TOPIRAMATE [Suspect]
     Active Substance: TOPIRAMATE
     Dosage: 50 MILLIGRAM, QD
     Route: 048
  34. TOPIRAMATE [Suspect]
     Active Substance: TOPIRAMATE
     Dosage: 50 MILLIGRAM, BID (0.5 DAY)
     Route: 048
     Dates: start: 201903
  35. VENLAFAXINE [Suspect]
     Active Substance: VENLAFAXINE HYDROCHLORIDE
     Indication: Product used for unknown indication
     Dosage: UNK, (MAR-2019)
     Route: 065
  36. VENLAFAXINE [Suspect]
     Active Substance: VENLAFAXINE HYDROCHLORIDE
     Dosage: UNK, (MAR-2019)
     Route: 065
  37. VENLAFAXINE [Suspect]
     Active Substance: VENLAFAXINE HYDROCHLORIDE
     Dosage: UNK
     Route: 065
     Dates: start: 201903
  38. VENLAFAXINE [Suspect]
     Active Substance: VENLAFAXINE HYDROCHLORIDE
     Dosage: 75 MILLIGRAM
     Route: 048
     Dates: start: 201903
  39. VENLAFAXINE [Suspect]
     Active Substance: VENLAFAXINE HYDROCHLORIDE
     Dosage: 75 MILLIGRAM
     Route: 065
     Dates: start: 201903
  40. VENLAFAXINE [Suspect]
     Active Substance: VENLAFAXINE HYDROCHLORIDE
     Dosage: 75 MILLIGRAM
     Route: 048
     Dates: start: 201903
  41. PREGABALIN [Concomitant]
     Active Substance: PREGABALIN
     Indication: Anxiolytic therapy
     Dosage: 75 MILLIGRAM
     Route: 048
  42. PREGABALIN [Concomitant]
     Active Substance: PREGABALIN
     Dosage: 75 MILLIGRAM
     Route: 048
  43. PREGABALIN [Concomitant]
     Active Substance: PREGABALIN
     Dosage: 75 MILLIGRAM
     Route: 048
  44. PREGABALIN [Concomitant]
     Active Substance: PREGABALIN
     Dosage: 75 MILLIGRAM
     Route: 048
  45. PREGABALIN [Concomitant]
     Active Substance: PREGABALIN
     Dosage: UNK
     Route: 065

REACTIONS (6)
  - Hospitalisation [Unknown]
  - Infection [Unknown]
  - Off label use [Unknown]
  - Product use in unapproved indication [Unknown]
  - Pyrexia [Recovered/Resolved]
  - Overdose [Unknown]

NARRATIVE: CASE EVENT DATE: 20161010
